FAERS Safety Report 23954816 (Version 2)
Quarter: 2024Q2

REPORT INFORMATION
  Report Type: Spontaneous
  Country: US (occurrence: US)
  Receive Date: 20240610
  Receipt Date: 20240615
  Transmission Date: 20240715
  Serious: No
  Sender: FDA-Public Use
  Company Number: US-BoehringerIngelheim-2024-BI-032744

PATIENT
  Age: 49 Year
  Sex: Female

DRUGS (1)
  1. GLYXAMBI [Suspect]
     Active Substance: EMPAGLIFLOZIN\LINAGLIPTIN
     Indication: Diabetes mellitus
     Dosage: 25/5 MG
     Route: 048
     Dates: start: 20210924

REACTIONS (2)
  - Blood glucose increased [Unknown]
  - Malaise [Not Recovered/Not Resolved]

NARRATIVE: CASE EVENT DATE: 20240607
